FAERS Safety Report 10503923 (Version 1)
Quarter: 2014Q4

REPORT INFORMATION
  Report Type: Spontaneous
  Country: US (occurrence: None)
  Receive Date: 20141006
  Receipt Date: 20141006
  Transmission Date: 20150528
  Serious: Yes (Other)
  Sender: FDA-Public Use
  Company Number: VAL_03423_2014

PATIENT
  Age: 16 Year
  Sex: Male

DRUGS (3)
  1. NUTROPIN AQ [Suspect]
     Active Substance: SOMATROPIN
     Indication: GROWTH HORMONE DEFICIENCY
     Route: 058
  2. K-PHOS NEUTRAL (UNKNOWN) [Concomitant]
  3. CALCITRIOL. [Suspect]
     Active Substance: CALCITRIOL
     Indication: PRODUCT USED FOR UNKNOWN INDICATION
     Dosage: TWO CAPSULE EVERY 12 HRS
     Route: 048

REACTIONS (3)
  - Abnormal weight gain [None]
  - Hand fracture [None]
  - Pharyngeal erythema [None]

NARRATIVE: CASE EVENT DATE: 20111201
